FAERS Safety Report 10995847 (Version 1)
Quarter: 2015Q2

REPORT INFORMATION
  Report Type: Spontaneous
  Country: JP (occurrence: JP)
  Receive Date: 20150407
  Receipt Date: 20150407
  Transmission Date: 20150821
  Serious: Yes (Other)
  Sender: FDA-Public Use
  Company Number: JP-B.I. PHARMACEUTICALS,INC./RIDGEFIELD-2015-BI-17807YA

PATIENT
  Age: 79 Year
  Sex: Male

DRUGS (4)
  1. HARNAL [Suspect]
     Active Substance: TAMSULOSIN HYDROCHLORIDE
     Indication: BENIGN PROSTATIC HYPERPLASIA
     Dosage: FORMULATION: ORODISPERSIBLE TABLET
     Route: 048
  2. MUCOSOLATE [Concomitant]
     Active Substance: AMBROXOL HYDROCHLORIDE
     Indication: BRONCHITIS CHRONIC
     Route: 065
  3. AVOLVE [Concomitant]
     Active Substance: DUTASTERIDE
     Indication: PRODUCT USED FOR UNKNOWN INDICATION
     Route: 048
  4. NU-LOTAN [Concomitant]
     Active Substance: LOSARTAN POTASSIUM
     Indication: HYPERTENSION
     Route: 065

REACTIONS (1)
  - Ageusia [Unknown]
